FAERS Safety Report 23504941 (Version 1)
Quarter: 2024Q1

REPORT INFORMATION
  Report Type: Spontaneous
  Country: US (occurrence: US)
  Receive Date: 20240209
  Receipt Date: 20240209
  Transmission Date: 20240410
  Serious: Yes (Other)
  Sender: FDA-Public Use
  Company Number: None

PATIENT
  Age: 45 Year
  Sex: Male

DRUGS (2)
  1. GABAPENTIN [Suspect]
     Active Substance: GABAPENTIN
     Indication: Peripheral sensorimotor neuropathy
     Dosage: 300 MILLIGRAM, BID (EVERY 12 HOUR)
     Route: 065
  2. GABAPENTIN [Suspect]
     Active Substance: GABAPENTIN
     Dosage: 400 MILLIGRAM, TID (EVERY 8 HOUR) (INCREASED DOSE)
     Route: 065

REACTIONS (1)
  - Oedema peripheral [Recovering/Resolving]
